FAERS Safety Report 8059767-6 (Version None)
Quarter: 2012Q1

REPORT INFORMATION
  Report Type: 
  Country: None (occurrence: None)
  Receive Date: 20120120
  Receipt Date: 20120117
  Transmission Date: 20120608
  Serious: Yes (Other)
  Sender: FDA-Public Use
  Company Number: PHEH2011US011809

PATIENT
  Sex: Male
  Weight: 63 kg

DRUGS (1)
  1. EXJADE [Suspect]
     Indication: IRON OVERLOAD
     Dosage: 2500 MG, DAILY
     Route: 048
     Dates: start: 20081206

REACTIONS (3)
  - HEPATITIS C [None]
  - LACTOSE INTOLERANCE [None]
  - SERUM FERRITIN INCREASED [None]
